FAERS Safety Report 20175350 (Version 2)
Quarter: 2021Q4

REPORT INFORMATION
  Report Type: Report from Study
  Country: SE (occurrence: SE)
  Receive Date: 20211213
  Receipt Date: 20211220
  Transmission Date: 20220303
  Serious: Yes (Hospitalization, Other)
  Sender: FDA-Public Use
  Company Number: SE-ALNYLAM PHARMACEUTICALS, INC.-ALN-2021-003302

PATIENT

DRUGS (23)
  1. GIVLAARI [Suspect]
     Active Substance: GIVOSIRAN SODIUM
     Indication: Porphyria acute
     Dosage: 2.5 MILLIGRAM/KILOGRAM (0.57 MILLILITER (189 MG/ML)), MONTHLY
     Route: 058
     Dates: start: 20211125
  2. ESOMEPRAZOLE [Concomitant]
     Active Substance: ESOMEPRAZOLE
     Indication: Gastritis
     Dosage: 40 MILLIGRAM, QD
     Route: 042
     Dates: start: 20211122
  3. CLONIDINE [Concomitant]
     Active Substance: CLONIDINE
     Indication: Pain
     Dosage: 15 MICROGRAM, PRN
     Route: 042
     Dates: start: 20211111
  4. CLONIDINE [Concomitant]
     Active Substance: CLONIDINE
     Indication: Anxiety
  5. glucose, carbohydrate [Concomitant]
     Indication: Product used for unknown indication
     Dosage: 1000 MILLILITER, BID
     Route: 042
     Dates: start: 20210929
  6. HEMIN [Concomitant]
     Active Substance: HEMIN
     Indication: Prophylaxis
     Dosage: 5 MILLILITER
     Route: 065
     Dates: start: 20211112, end: 20211112
  7. HEMIN [Concomitant]
     Active Substance: HEMIN
     Dosage: 5 MILLILITER
     Route: 065
     Dates: start: 20211111, end: 20211111
  8. HEMIN [Concomitant]
     Active Substance: HEMIN
     Dosage: 5 MILLILITER
     Route: 065
     Dates: start: 20211110, end: 20211110
  9. HEMIN [Concomitant]
     Active Substance: HEMIN
     Dosage: 5 MILLILITER
     Route: 065
     Dates: start: 20211109, end: 20211109
  10. HEMIN [Concomitant]
     Active Substance: HEMIN
     Dosage: 5 MILLILITER
     Route: 065
     Dates: start: 20211027, end: 20211027
  11. HEMIN [Concomitant]
     Active Substance: HEMIN
     Dosage: 5 MILLILITER
     Route: 065
     Dates: start: 20211026, end: 20211026
  12. HEMIN [Concomitant]
     Active Substance: HEMIN
     Dosage: 5 MILLILITER
     Route: 065
     Dates: start: 20211025, end: 20211025
  13. HEMIN [Concomitant]
     Active Substance: HEMIN
     Dosage: 5 MILLILITER
     Route: 065
     Dates: start: 20211024, end: 20211024
  14. HEMIN [Concomitant]
     Active Substance: HEMIN
     Dosage: 5 MILLILITER
     Route: 065
     Dates: start: 20211022, end: 20211022
  15. HEMIN [Concomitant]
     Active Substance: HEMIN
     Dosage: 5 MILLILITER
     Route: 065
     Dates: start: 20211010, end: 20211010
  16. HEMIN [Concomitant]
     Active Substance: HEMIN
     Dosage: 5 MILLILITER
     Route: 065
     Dates: start: 20211009, end: 20211009
  17. HEMIN [Concomitant]
     Active Substance: HEMIN
     Dosage: 5 MILLILITER
     Route: 065
     Dates: start: 20211008, end: 20211008
  18. HEMIN [Concomitant]
     Active Substance: HEMIN
     Dosage: 5 MILLILITER
     Route: 065
     Dates: start: 20211003, end: 20211003
  19. HEMIN [Concomitant]
     Active Substance: HEMIN
     Dosage: 5 MILLILITER
     Route: 065
     Dates: start: 20211002, end: 20211002
  20. HEMIN [Concomitant]
     Active Substance: HEMIN
     Dosage: 5 MILLILITER
     Route: 065
     Dates: start: 20211023, end: 20211023
  21. HEMIN [Concomitant]
     Active Substance: HEMIN
     Dosage: 5 MILLILITER
     Route: 065
     Dates: start: 20211001, end: 20211001
  22. HEMIN [Concomitant]
     Active Substance: HEMIN
     Dosage: 5 MILLILITER
     Route: 065
     Dates: start: 20210930, end: 20210930
  23. HEMIN [Concomitant]
     Active Substance: HEMIN
     Dosage: 5 MILLILITER
     Route: 065
     Dates: start: 20210929, end: 20210929

REACTIONS (2)
  - Sepsis [Recovering/Resolving]
  - Liver function test increased [Not Recovered/Not Resolved]

NARRATIVE: CASE EVENT DATE: 20211204
